FAERS Safety Report 7449691-1 (Version None)
Quarter: 2011Q2

REPORT INFORMATION
  Report Type: 
  Country: None (occurrence: None)
  Receive Date: 20110421
  Receipt Date: 20110411
  Transmission Date: 20111010
  Serious: Yes (Hospitalization)
  Sender: FDA-Public Use
  Company Number: 2011SP016153

PATIENT
  Age: 59 Year
  Sex: Female

DRUGS (2)
  1. BACTRIM [Suspect]
     Indication: INFECTION PROPHYLAXIS
     Dosage: QW; PO
     Route: 048
     Dates: start: 20110120, end: 20110207
  2. TEMODAL [Suspect]
     Indication: ASTROCYTOMA
     Dosage: 75 MG/ME; QD; PO
     Route: 048
     Dates: start: 20101228, end: 20110207

REACTIONS (3)
  - ENTEROBACTER BACTERAEMIA [None]
  - CELLULITIS GANGRENOUS [None]
  - AGRANULOCYTOSIS [None]
